FAERS Safety Report 24165412 (Version 1)
Quarter: 2024Q3

REPORT INFORMATION
  Report Type: Spontaneous
  Country: GB (occurrence: GB)
  Receive Date: 20240802
  Receipt Date: 20240802
  Transmission Date: 20241016
  Serious: Yes (Disabling, Other)
  Sender: TEVA
  Company Number: GB-Flynn Pharma Ltd.-FLY20240700205

PATIENT
  Sex: Female

DRUGS (1)
  1. PHENYTOIN [Suspect]
     Active Substance: PHENYTOIN
     Indication: Product used for unknown indication
     Route: 065

REACTIONS (7)
  - Neuropathy peripheral [Not Recovered/Not Resolved]
  - Emotional distress [Unknown]
  - Muscle spasms [Unknown]
  - Hypoaesthesia [Unknown]
  - Mobility decreased [Unknown]
  - Poor quality sleep [Unknown]
  - Paraesthesia [Unknown]
